FAERS Safety Report 24163786 (Version 3)
Quarter: 2025Q3

REPORT INFORMATION
  Report Type: Other
  Country: EU (occurrence: EU)
  Receive Date: 20240801
  Receipt Date: 20250731
  Transmission Date: 20251020
  Serious: Yes (Death, Life-Threatening, Hospitalization, Other)
  Sender: INCYTE
  Company Number: None

PATIENT
  Age: 44 Year
  Weight: 45 kg

DRUGS (1)
  1. PEMAZYRE [Suspect]
     Active Substance: PEMIGATINIB
     Indication: Gallbladder cancer metastatic
     Dosage: 13,5 MG FOR 14 DAYS, FOLLOWED BY A 7-DAY BREAK

REACTIONS (4)
  - Calciphylaxis [Fatal]
  - Skin necrosis [Fatal]
  - Skin infection [Fatal]
  - Off label use [Unknown]
